FAERS Safety Report 7917960-4 (Version None)
Quarter: 2011Q4

REPORT INFORMATION
  Report Type: 
  Country: None (occurrence: None)
  Receive Date: 20111116
  Receipt Date: 20111114
  Transmission Date: 20120403
  Serious: Yes (Death)
  Sender: FDA-Public Use
  Company Number: PHEH2011US009201

PATIENT
  Sex: Female

DRUGS (13)
  1. LASIX [Concomitant]
  2. CALCIUM [Concomitant]
  3. TRICOR [Concomitant]
  4. LANTUS [Concomitant]
  5. CRESTOR [Concomitant]
  6. CYMBALTA [Concomitant]
  7. AMIODARONE HCL [Concomitant]
  8. CENTRUM SILVER [Concomitant]
  9. GLEEVEC [Suspect]
     Dosage: 1 DF (400 MG), DAILY
     Route: 048
  10. FISH OIL [Concomitant]
  11. CALCITRIOL [Concomitant]
  12. NOVOLOG [Concomitant]
  13. COZAAR [Concomitant]

REACTIONS (1)
  - DEATH [None]
